FAERS Safety Report 25979503 (Version 1)
Quarter: 2025Q4

REPORT INFORMATION
  Report Type: Spontaneous
  Country: US (occurrence: US)
  Receive Date: 20251030
  Receipt Date: 20251030
  Transmission Date: 20260118
  Serious: No
  Sender: UNIQUE PHARMACEUTICALS
  Company Number: US-UniquePharma-US-2025UPLSPO00113

PATIENT

DRUGS (1)
  1. BISOPROLOL FUMARATE [Suspect]
     Active Substance: BISOPROLOL FUMARATE
     Indication: Product used for unknown indication
     Route: 065
     Dates: start: 2025

REACTIONS (1)
  - Heart rate decreased [Unknown]

NARRATIVE: CASE EVENT DATE: 20250101
